FAERS Safety Report 12995129 (Version 4)
Quarter: 2016Q4

REPORT INFORMATION
  Report Type: Spontaneous
  Country: ES (occurrence: ES)
  Receive Date: 20161202
  Receipt Date: 20161214
  Transmission Date: 20170207
  Serious: Yes (Other)
  Sender: FDA-Public Use
  Company Number: ES-009507513-1612ESP001047

PATIENT
  Age: 52 Year
  Sex: Female

DRUGS (8)
  1. ONDANSETRON [Suspect]
     Active Substance: ONDANSETRON
     Indication: PROPHYLAXIS OF NAUSEA AND VOMITING
     Dosage: 8 MG, Q3W (ON DAY 1 OF EACH CYCLE)
     Route: 042
     Dates: start: 20160212
  2. EMEND [Suspect]
     Active Substance: APREPITANT
     Indication: PROPHYLAXIS OF NAUSEA AND VOMITING
     Dosage: 125 MG, Q3W (ON DAY 1 EACH CYCLE)
     Route: 048
     Dates: start: 20160212
  3. EMEND [Suspect]
     Active Substance: APREPITANT
     Dosage: 80 MG, CYCLICAL (ON DAYS 2 AND 3 OF EACH CYCLE)
     Route: 048
     Dates: start: 20160213
  4. CARBOPLATIN. [Suspect]
     Active Substance: CARBOPLATIN
     Indication: CHEMOTHERAPY
     Dosage: UNK, Q3W
     Dates: start: 20160212
  5. DEXAMETHASONE. [Suspect]
     Active Substance: DEXAMETHASONE
     Indication: PROPHYLAXIS OF NAUSEA AND VOMITING
     Dosage: 12 MG, Q3W (ON DAY 1 OF EACH CYCLE)
     Route: 042
     Dates: start: 20160212
  6. METOCLOPRAMIDE. [Concomitant]
     Active Substance: METOCLOPRAMIDE
     Indication: PROPHYLAXIS OF NAUSEA AND VOMITING
     Dosage: UNK, Q3W(DAY 8 OF EACH CYCLE)
     Route: 048
  7. GEMCITABINE [Suspect]
     Active Substance: GEMCITABINE\GEMCITABINE HYDROCHLORIDE
     Indication: CHEMOTHERAPY
     Dosage: 1000 MG/M2, CYCLICAL (DAYS 1 AND 8 OF EACH 21-DAY CYCLE)
     Dates: start: 20160212
  8. ZOLEDRONIC ACID [Suspect]
     Active Substance: ZOLEDRONIC ACID
     Indication: CHEMOTHERAPY
     Dosage: UNK, Q3W

REACTIONS (3)
  - Asthenia [Recovered/Resolved]
  - Neutropenia [Unknown]
  - Malignant neoplasm progression [Unknown]

NARRATIVE: CASE EVENT DATE: 2016
